FAERS Safety Report 4364890-3 (Version None)
Quarter: 2004Q2

REPORT INFORMATION
  Report Type: 
  Country: None (occurrence: None)
  Receive Date: 20040521
  Receipt Date: 20040511
  Transmission Date: 20050107
  Serious: Yes (Other)
  Sender: FDA-Public Use
  Company Number: CA-JNJFOC-20031001617

PATIENT
  Age: 30 Year
  Sex: Female
  Weight: 47.5 kg

DRUGS (1)
  1. REMICADE [Suspect]
     Indication: CROHN'S DISEASE
     Dosage: 5 MG/KG, 1 IN 1 DAY, INTRAVENOUS
     Route: 042
     Dates: start: 20010101

REACTIONS (4)
  - VAGINAL CANCER RECURRENT [None]
  - VAGINAL CANCER STAGE 0 [None]
  - VAGINAL LESION [None]
  - VAGINITIS BACTERIAL [None]
